FAERS Safety Report 10888794 (Version 1)
Quarter: 2015Q1

REPORT INFORMATION
  Report Type: Report from Study
  Country: JP (occurrence: JP)
  Receive Date: 20150305
  Receipt Date: 20150305
  Transmission Date: 20150721
  Serious: Yes (Life-Threatening, Hospitalization)
  Sender: FDA-Public Use
  Company Number: JP-EISAI MEDICAL RESEARCH-E2080-00677-SOL-JP

PATIENT
  Age: 2 Year
  Sex: Male
  Weight: 12.8 kg

DRUGS (15)
  1. INOVELON [Suspect]
     Active Substance: RUFINAMIDE
     Route: 048
     Dates: start: 20131204, end: 20131205
  2. KEPPRA [Concomitant]
     Active Substance: LEVETIRACETAM
  3. EXCEGRAN [Concomitant]
     Active Substance: ZONISAMIDE
  4. RIVOTRIL [Concomitant]
     Active Substance: CLONAZEPAM
  5. INOVELON [Suspect]
     Active Substance: RUFINAMIDE
     Route: 048
     Dates: start: 20131209, end: 20131211
  6. INOVELON [Suspect]
     Active Substance: RUFINAMIDE
     Route: 048
     Dates: start: 201312, end: 20131203
  7. INOVELON [Suspect]
     Active Substance: RUFINAMIDE
     Route: 048
     Dates: start: 20131206, end: 20131208
  8. INOVELON [Suspect]
     Active Substance: RUFINAMIDE
     Indication: LENNOX-GASTAUT SYNDROME
     Route: 048
     Dates: start: 20131128, end: 20131130
  9. INOVELON [Suspect]
     Active Substance: RUFINAMIDE
     Route: 048
     Dates: start: 20131215, end: 20131225
  10. MAGLAX [Concomitant]
     Active Substance: MAGNESIUM OXIDE
  11. L-CARTIN [Concomitant]
     Active Substance: LEVOCARNITINE HYDROCHLORIDE
  12. INOVELON [Suspect]
     Active Substance: RUFINAMIDE
     Route: 048
     Dates: start: 20131212, end: 20131214
  13. SODIUM VALPROATE [Concomitant]
     Active Substance: VALPROATE SODIUM
     Indication: LENNOX-GASTAUT SYNDROME
     Route: 048
     Dates: start: 20131204
  14. PHENOBAL [Suspect]
     Active Substance: PHENOBARBITAL
     Indication: LENNOX-GASTAUT SYNDROME
     Route: 048
     Dates: start: 20131218, end: 20131223
  15. ALEVIATIN [Concomitant]
     Active Substance: PHENYTOIN SODIUM
     Indication: LENNOX-GASTAUT SYNDROME

REACTIONS (2)
  - Rash [Recovered/Resolved]
  - Pyrexia [Recovered/Resolved]

NARRATIVE: CASE EVENT DATE: 20131220
